FAERS Safety Report 4536538-6 (Version None)
Quarter: 2004Q4

REPORT INFORMATION
  Report Type: 
  Country: None (occurrence: None)
  Receive Date: 20041220
  Receipt Date: 20041210
  Transmission Date: 20050328
  Serious: Yes (Death)
  Sender: FDA-Public Use
  Company Number: 163-20785-04120341

PATIENT
  Age: 59 Year
  Sex: Female

DRUGS (4)
  1. THALOMID [Suspect]
     Indication: MULTIPLE MYELOMA
     Dosage: 50 MG, QD, ORAL
     Route: 048
     Dates: start: 20040728, end: 20040913
  2. GROWTH FACTORS [Concomitant]
  3. PROCRIT (ERYTHROPIETIN) [Concomitant]
  4. RADIATION THERAPY [Concomitant]

REACTIONS (4)
  - ACUTE MYELOID LEUKAEMIA [None]
  - MULTIPLE MYELOMA [None]
  - NEOPLASM PROGRESSION [None]
  - PLEURAL EFFUSION [None]
